FAERS Safety Report 5074436-2 (Version None)
Quarter: 2006Q3

REPORT INFORMATION
  Report Type: 
  Country: None (occurrence: None)
  Receive Date: 20060803
  Receipt Date: 20060724
  Transmission Date: 20061208
  Serious: Yes (Hospitalization, Other)
  Sender: FDA-Public Use
  Company Number: HQWYE029915DEC05

PATIENT
  Age: 41 Year
  Sex: Male

DRUGS (15)
  1. RAPAMUNE [Suspect]
     Indication: PROPHYLAXIS AGAINST TRANSPLANT REJECTION
     Dosage: 5 MG 1X PER 1 DAY, ORAL
     Route: 048
     Dates: start: 20051114, end: 20060119
  2. OMEPRAZOLE [Concomitant]
  3. ACETYLCYSTEINE [Concomitant]
  4. FUROSEMIDE [Concomitant]
  5. BACTRIM [Concomitant]
  6. ACYCLOVIR [Concomitant]
  7. NYSTATIN [Concomitant]
  8. AMPICILLIN SODIUM W/SULBACTAM SODIUM (AMPICILLIN SODIUM/SULBACTAM SODI [Concomitant]
  9. PIPERACILLIN SODIUM W/TAZOBACTAM SODIUM (PIPERACILLIN SODIUM/TAZOBACTA [Concomitant]
  10. MEROPENEM (MEROPENEM) [Concomitant]
  11. TEICOPLANIN (TEICOPLANIN) [Concomitant]
  12. POTASSIUM (POTASSIUM) [Concomitant]
  13. LACTULOSE [Concomitant]
  14. POTASSIUM CHLORIDE [Concomitant]
  15. ACETAMINOPHEN [Concomitant]

REACTIONS (3)
  - AEROMONA INFECTION [None]
  - IMPAIRED HEALING [None]
  - INCISION SITE HAEMATOMA [None]
